FAERS Safety Report 23656566 (Version 1)
Quarter: 2024Q1

REPORT INFORMATION
  Report Type: Other
  Country: FR (occurrence: FR)
  Receive Date: 20240321
  Receipt Date: 20240321
  Transmission Date: 20240409
  Serious: Yes (Death, Other)
  Sender: FDA-Public Use
  Company Number: FR-AFSSAPS-AM2024000088

PATIENT
  Age: 55 Year
  Sex: Male
  Weight: 138 kg

DRUGS (8)
  1. DICLOFENAC [Suspect]
     Active Substance: DICLOFENAC
     Indication: Diabetic foot
     Dosage: UNK
     Route: 003
     Dates: start: 20230921, end: 20231230
  2. KARDEGIC [Suspect]
     Active Substance: ASPIRIN DL-LYSINE
     Indication: Cardiovascular event prophylaxis
     Dosage: 75 MILLIGRAM, QD
     Route: 048
     Dates: end: 20240122
  3. METFORMIN [Suspect]
     Active Substance: METFORMIN HYDROCHLORIDE
     Indication: Type 2 diabetes mellitus
     Dosage: 2550 MILLIGRAM, QD
     Route: 048
     Dates: end: 20240123
  4. HYDROCORTISONE [Suspect]
     Active Substance: HYDROCORTISONE
     Indication: Diabetic foot
     Dosage: UNK
     Route: 003
     Dates: start: 20230921
  5. CANDESARTAN CILEXETIL\HYDROCHLOROTHIAZIDE [Suspect]
     Active Substance: CANDESARTAN CILEXETIL\HYDROCHLOROTHIAZIDE
     Indication: Hypertension
     Dosage: 1 DOSAGE FORM, QD
     Route: 048
     Dates: end: 20240122
  6. IBUPROFEN [Suspect]
     Active Substance: IBUPROFEN
     Indication: Pain
     Dosage: UNK
     Route: 048
     Dates: start: 20240115, end: 20240122
  7. NAPROXEN [Suspect]
     Active Substance: NAPROXEN
     Indication: Diabetic foot
     Dosage: 550 MILLIGRAM
     Route: 048
     Dates: start: 20231130, end: 20231230
  8. PRAVASTATIN SODIUM [Suspect]
     Active Substance: PRAVASTATIN SODIUM
     Indication: Dyslipidaemia
     Dosage: 20 MILLIGRAM, QD
     Route: 048
     Dates: end: 20240122

REACTIONS (3)
  - Acute kidney injury [Fatal]
  - Lactic acidosis [Fatal]
  - Infection [Fatal]

NARRATIVE: CASE EVENT DATE: 20240123
